FAERS Safety Report 7573778-6 (Version None)
Quarter: 2011Q2

REPORT INFORMATION
  Report Type: 
  Country: None (occurrence: None)
  Receive Date: 20110627
  Receipt Date: 20110616
  Transmission Date: 20111010
  Serious: Yes (Hospitalization)
  Sender: FDA-Public Use
  Company Number: US-ROCHE-785303

PATIENT
  Sex: Female
  Weight: 54.4 kg

DRUGS (3)
  1. BEVACIZUMAB [Suspect]
     Route: 042
     Dates: start: 20110516
  2. BEVACIZUMAB [Suspect]
     Indication: METASTATIC RENAL CELL CARCINOMA
     Dosage: FORM: INFUSION
     Route: 042
     Dates: start: 20101210
  3. BEVACIZUMAB [Suspect]
     Route: 042
     Dates: start: 20110513

REACTIONS (1)
  - DISORIENTATION [None]
